FAERS Safety Report 9351123 (Version 10)
Quarter: 2013Q3

REPORT INFORMATION
  Report Type: Report from Study
  Country: US (occurrence: US)
  Receive Date: 20130617
  Receipt Date: 20130923
  Transmission Date: 20140515
  Serious: No
  Sender: FDA-Public Use
  Company Number: US-VERTEX PHARMACEUTICALS INC-2013-007073

PATIENT
  Age: 59 Year
  Sex: Male
  Weight: 61 kg

DRUGS (17)
  1. VX-950 (TELAPREVIR) [Suspect]
     Indication: HEPATITIS C
     Dosage: 750 MG, TID
     Route: 048
     Dates: start: 20130609, end: 201309
  2. COPEGUS [Suspect]
     Indication: HEPATITIS C
     Dosage: 600MG IN MORNING, 400MG IN EVENING
     Route: 048
     Dates: start: 20130609
  3. COPEGUS [Suspect]
     Dosage: 400 MG AM, 200 MG PM
     Route: 048
     Dates: start: 201308
  4. COPEGUS [Suspect]
     Dosage: 200 MG, BID
     Route: 048
  5. PEGASYS [Suspect]
     Indication: HEPATITIS C
     Dosage: 180 ?G, QW
     Route: 058
     Dates: start: 20130609
  6. PEGASYS [Suspect]
     Dosage: 135 ?G, QW
     Route: 058
     Dates: start: 20130904
  7. PEGASYS [Suspect]
     Dosage: 180 ?G, UNK
     Route: 058
  8. LEVOTHYROXINE [Concomitant]
     Indication: HYPOTHYROIDISM
     Dosage: 50 ?G, QD
     Route: 048
     Dates: start: 2013
  9. VITAMIN K [Concomitant]
     Dosage: MONTHLY INJECTIONS
     Dates: start: 2013
  10. QUINIDINE [Concomitant]
     Indication: ARRHYTHMIA
     Route: 048
  11. FUROSEMIDE [Concomitant]
     Indication: DIURETIC THERAPY
     Dosage: 20 MG, TID
  12. FUROSEMIDE [Concomitant]
     Dosage: 20 MG, QD
  13. SPIRONOLACTONE [Concomitant]
     Indication: DIURETIC THERAPY
     Dosage: 50 MG, BID
     Route: 048
  14. SPIRONOLACTONE [Concomitant]
     Indication: HYPERTENSION
  15. LIBRIUM [Concomitant]
     Indication: INSOMNIA
     Dosage: UNK, PRN
     Route: 048
  16. VITAMIN B12 [Concomitant]
     Indication: MEDICAL DIET
     Dosage: AS DIRECTED
     Route: 048
  17. LASIX [Concomitant]
     Indication: HYPERTENSION

REACTIONS (12)
  - Visual impairment [Not Recovered/Not Resolved]
  - Blood sodium decreased [Recovered/Resolved]
  - Injection site pruritus [Not Recovered/Not Resolved]
  - Constipation [Recovered/Resolved]
  - Inappropriate schedule of drug administration [Recovered/Resolved]
  - Fatigue [Not Recovered/Not Resolved]
  - Diarrhoea [Recovered/Resolved]
  - Haemorrhoids [Not Recovered/Not Resolved]
  - Anorectal discomfort [Recovered/Resolved]
  - Anal pruritus [Not Recovered/Not Resolved]
  - Pruritus [Recovered/Resolved]
  - Platelet count decreased [Not Recovered/Not Resolved]
